FAERS Safety Report 6814619-1 (Version None)
Quarter: 2010Q3

REPORT INFORMATION
  Report Type: 
  Country: None (occurrence: None)
  Receive Date: 20100702
  Receipt Date: 20100624
  Transmission Date: 20110219
  Serious: Yes (Other)
  Sender: FDA-Public Use
  Company Number: JP-PFIZER INC-2010081669

PATIENT
  Age: 75 Year
  Sex: Male

DRUGS (8)
  1. CELECOX [Suspect]
     Dosage: 400 MG/DAY
     Route: 048
     Dates: start: 20100527
  2. MUCOSTA [Concomitant]
     Dosage: UNK
     Route: 048
  3. RIMATIL [Concomitant]
     Dosage: UNK
     Route: 048
  4. PREDONINE [Concomitant]
     Dosage: UNK
     Route: 048
  5. COTRIM [Concomitant]
     Dosage: UNK
     Route: 048
  6. PARIET [Concomitant]
     Dosage: UNK
     Route: 048
  7. ALENDRONATE SODIUM [Concomitant]
     Dosage: UNK
     Route: 048
  8. ASVERIN [Concomitant]
     Dosage: UNK
     Route: 048

REACTIONS (2)
  - DEPRESSED LEVEL OF CONSCIOUSNESS [None]
  - URINE OUTPUT DECREASED [None]
